FAERS Safety Report 6357220-9 (Version None)
Quarter: 2009Q3

REPORT INFORMATION
  Report Type: 
  Country: None (occurrence: None)
  Receive Date: 20090911
  Receipt Date: 20090902
  Transmission Date: 20100115
  Serious: Yes (Hospitalization)
  Sender: FDA-Public Use
  Company Number: CERZ-1000851

PATIENT
  Age: 64 Year
  Sex: Male

DRUGS (2)
  1. CEREZYME [Suspect]
     Indication: GAUCHER'S DISEASE
     Dosage: 45 U/KG, Q2W, INTRAVENOUS; 60 U/KG, INTRAVENOUS
     Route: 042
     Dates: start: 20021001, end: 20040101
  2. CEREZYME [Suspect]
     Indication: GAUCHER'S DISEASE
     Dosage: 45 U/KG, Q2W, INTRAVENOUS; 60 U/KG, INTRAVENOUS
     Route: 042
     Dates: start: 20040101

REACTIONS (1)
  - ACUTE LEUKAEMIA [None]
